FAERS Safety Report 5108328-7 (Version None)
Quarter: 2006Q3

REPORT INFORMATION
  Report Type: 
  Country: None (occurrence: None)
  Receive Date: 20060915
  Receipt Date: 20060911
  Transmission Date: 20061208
  Serious: Yes (Other)
  Sender: FDA-Public Use
  Company Number: 163-20785-06090322

PATIENT

DRUGS (2)
  1. THALOMID [Suspect]
     Indication: MALIGNANT MELANOMA
     Dosage: SEE IMAGE, ORAL
     Route: 048
  2. TEMOZOLOMIDE (TEMOZOLOMIDE) [Suspect]
     Indication: MALIGNANT MELANOMA
     Dosage: 75 MG/M2, DAILY FOR 6 WEEKS

REACTIONS (1)
  - NEUROTOXICITY [None]
